FAERS Safety Report 7900228-X (Version None)
Quarter: 2011Q4

REPORT INFORMATION
  Report Type: 
  Country: None (occurrence: None)
  Receive Date: 20111104
  Receipt Date: 20111021
  Transmission Date: 20120403
  Serious: Yes (Hospitalization)
  Sender: FDA-Public Use
  Company Number: IPC201110-003203

PATIENT
  Age: 51 Year
  Sex: Male

DRUGS (2)
  1. METFORMIN HYDROCHLORIDE [Suspect]
     Indication: DIABETES MELLITUS
     Dosage: EVERY 6 HOURS
  2. OXYCODONE/ACETAMINOPHEN [Suspect]
     Indication: PAIN

REACTIONS (6)
  - UNRESPONSIVE TO STIMULI [None]
  - BLOOD PRESSURE DECREASED [None]
  - CHEYNE-STOKES RESPIRATION [None]
  - ACCIDENTAL OVERDOSE [None]
  - BLOOD GLUCOSE DECREASED [None]
  - LACTIC ACIDOSIS [None]
